FAERS Safety Report 8574065-X (Version None)
Quarter: 2012Q3

REPORT INFORMATION
  Report Type: 
  Country: None (occurrence: None)
  Receive Date: 20120806
  Receipt Date: 20120727
  Transmission Date: 20120928
  Serious: Yes (Other)
  Sender: FDA-Public Use
  Company Number: PHHY2012KR065975

PATIENT
  Age: 59 Year
  Sex: Male

DRUGS (5)
  1. TENOFOVIR DISOPROXIL FUMARATE [Concomitant]
     Dosage: 300 MG, QOD
     Dates: start: 20120618
  2. ADEFOVIR [Concomitant]
  3. SEBIVO [Suspect]
     Route: 048
     Dates: start: 20120521, end: 20120617
  4. TENOFOVIR DISOPROXIL FUMARATE [Concomitant]
     Dates: start: 20120521, end: 20120617
  5. ENTECAVIR [Concomitant]

REACTIONS (5)
  - EYELID OEDEMA [None]
  - AZOTAEMIA [None]
  - MYOPATHY [None]
  - BLOOD CREATINE INCREASED [None]
  - ASTHENIA [None]
